FAERS Safety Report 7197204-4 (Version None)
Quarter: 2010Q4

REPORT INFORMATION
  Report Type: 
  Country: None (occurrence: None)
  Receive Date: 20101224
  Receipt Date: 20101214
  Transmission Date: 20110411
  Serious: Yes (Other)
  Sender: FDA-Public Use
  Company Number: PHHY2010RU60392

PATIENT
  Age: 46 Year
  Sex: Male

DRUGS (7)
  1. GLEEVEC [Suspect]
     Indication: GASTROINTESTINAL STROMAL TUMOUR
     Dosage: 400 MG DAILY
     Dates: start: 20081127
  2. GLEEVEC [Interacting]
     Dosage: 800 MG DAILY
     Route: 048
     Dates: start: 20101108
  3. NYSTATIN [Interacting]
  4. MEZYM FORTE [Interacting]
  5. LINEX [Interacting]
  6. BILOBIL [Concomitant]
  7. CARSIL [Concomitant]

REACTIONS (6)
  - ABDOMINAL PAIN UPPER [None]
  - DIARRHOEA [None]
  - DISBACTERIOSIS [None]
  - DRUG INEFFECTIVE [None]
  - DRUG INTERACTION [None]
  - DRUG LEVEL DECREASED [None]
